FAERS Safety Report 8567818-5 (Version None)
Quarter: 2012Q3

REPORT INFORMATION
  Report Type: 
  Country: None (occurrence: None)
  Receive Date: 20120803
  Receipt Date: 20120723
  Transmission Date: 20120928
  Serious: Yes (Hospitalization)
  Sender: FDA-Public Use
  Company Number: FR-PFIZER INC-2012177278

PATIENT
  Age: 70 Year
  Sex: Male
  Weight: 70 kg

DRUGS (8)
  1. TEMSIROLIMUS [Suspect]
     Dosage: 50 MG, CYCLIC
     Dates: start: 20120629, end: 20120706
  2. RITUXIMAB [Concomitant]
     Dosage: 375 MG/M2, CYCLIC
     Route: 042
     Dates: start: 20120629
  3. DEXAMETHASONE [Concomitant]
     Dosage: 40 MG, 1X/DAY
     Route: 042
     Dates: start: 20120629, end: 20120702
  4. FASTURTEC [Concomitant]
     Indication: PROPHYLAXIS
     Dosage: UNK
     Dates: start: 20120629
  5. CYTARABINE [Concomitant]
     Dosage: 2G/M2
     Route: 042
     Dates: start: 20120630, end: 20120701
  6. PARACETAMOL [Concomitant]
     Indication: PREMEDICATION
  7. POLARAMINE [Concomitant]
     Indication: PREMEDICATION
  8. GRANOCYTE [Concomitant]
     Indication: PROPHYLAXIS
     Dosage: UNK
     Dates: start: 20120703, end: 20120708

REACTIONS (2)
  - FEBRILE BONE MARROW APLASIA [None]
  - THROMBOCYTOPENIA [None]
